FAERS Safety Report 4409304-X (Version None)
Quarter: 2004Q3

REPORT INFORMATION
  Report Type: 
  Country: None (occurrence: None)
  Receive Date: 20040723
  Receipt Date: 20040713
  Transmission Date: 20050211
  Serious: Yes (Death)
  Sender: FDA-Public Use
  Company Number: 2004S1002047

PATIENT
  Age: 59 Year
  Sex: Female

DRUGS (8)
  1. CLOZAPINE [Suspect]
     Indication: SCHIZOAFFECTIVE DISORDER
     Dosage: 25 MG Q HS, ORAL
     Route: 048
     Dates: start: 20040101
  2. CLOZAPINE [Suspect]
     Indication: SCHIZOAFFECTIVE DISORDER
     Dosage: SEE IMAGE
     Route: 048
     Dates: start: 20040101
  3. LORAZEPAM [Concomitant]
  4. TRAZODONE HCL [Concomitant]
  5. MIRTAZAPINE [Concomitant]
  6. BUSPIRONE [Concomitant]
  7. VENLAFAXINE HCL [Concomitant]
  8. WARFARIN SODIUM [Concomitant]

REACTIONS (3)
  - ASTHENIA [None]
  - FATIGUE [None]
  - SLEEP APNOEA SYNDROME [None]
